FAERS Safety Report 5514976-2 (Version None)
Quarter: 2007Q4

REPORT INFORMATION
  Report Type: 
  Country: None (occurrence: None)
  Receive Date: 20071113
  Receipt Date: 20061030
  Transmission Date: 20080405
  Serious: No
  Sender: FDA-Public Use
  Company Number: A0625354A

PATIENT
  Sex: Female

DRUGS (8)
  1. COREG [Suspect]
     Indication: HYPERTENSION
     Dosage: 6.25MG TWICE PER DAY
     Route: 048
  2. HYZAAR [Concomitant]
  3. ASPIRIN [Concomitant]
  4. LIPITOR [Concomitant]
  5. FOLIC ACID [Concomitant]
  6. CENTRUM SILVER [Concomitant]
  7. PREVACID [Concomitant]
  8. VITAMIN D [Concomitant]

REACTIONS (2)
  - CONSTIPATION [None]
  - COUGH [None]
